FAERS Safety Report 13434530 (Version 1)
Quarter: 2017Q2

REPORT INFORMATION
  Report Type: Spontaneous
  Country: US (occurrence: US)
  Receive Date: 20170412
  Receipt Date: 20170412
  Transmission Date: 20170830
  Serious: No
  Sender: FDA-Public Use
  Company Number: US-SA-2016SA062840

PATIENT
  Age: 24 Year
  Sex: Female

DRUGS (1)
  1. ALLEGRA ALLERGY [Suspect]
     Active Substance: FEXOFENADINE HYDROCHLORIDE
     Indication: MULTIPLE ALLERGIES
     Dosage: DRUG SATRT DATE 6-10 MONTHS AGO
     Route: 048
     Dates: end: 20160323

REACTIONS (1)
  - Drug ineffective [Unknown]
